FAERS Safety Report 8814199 (Version 1)
Quarter: 2012Q4

REPORT INFORMATION
  Report Type: Spontaneous
  Country: US (occurrence: None)
  Receive Date: 20120926
  Receipt Date: 20120926
  Transmission Date: 20130627
  Serious: Yes (Other)
  Sender: FDA-Public Use
  Company Number: None

PATIENT
  Age: 28 Year
  Sex: Female
  Weight: 86.18 kg

DRUGS (2)
  1. WAL-PHED PSEUDOEPHEDRINE 30MG WALGREENS/LNX INTERNATIONAL [Suspect]
     Indication: NASAL CONGESTION
     Dosage: 2 tablets 1 po
     Route: 048
     Dates: start: 20120925, end: 20120925
  2. WAL-PHED PSEUDOEPHEDRINE 30MG WALGREENS/LNX INTERNATIONAL [Suspect]
     Indication: EAR PAIN
     Dosage: 2 tablets 1 po
     Route: 048
     Dates: start: 20120925, end: 20120925

REACTIONS (2)
  - Heart rate increased [None]
  - Anxiety [None]
